FAERS Safety Report 5812462-3 (Version None)
Quarter: 2008Q3

REPORT INFORMATION
  Report Type: 
  Country: None (occurrence: None)
  Receive Date: 20080716
  Receipt Date: 20080716
  Transmission Date: 20090109
  Serious: Yes (Hospitalization)
  Sender: FDA-Public Use
  Company Number: None

PATIENT
  Age: 14 Year
  Sex: Male
  Weight: 65.7716 kg

DRUGS (3)
  1. DEPAKOTE [Suspect]
     Dosage: BUCCAL
     Route: 002
     Dates: start: 19990625
  2. ZONEGRAN [Suspect]
     Dosage: EVERY DAY BUCCAL
     Route: 002
     Dates: start: 19990625
  3. TRILEPTAL [Suspect]
     Dosage: 1200MG EVERY DAY BUCCAL
     Route: 002
     Dates: start: 20040815

REACTIONS (6)
  - ABNORMAL BEHAVIOUR [None]
  - DEPRESSION [None]
  - MANIA [None]
  - PSYCHOTIC DISORDER [None]
  - SCHIZOPHRENIA [None]
  - SUICIDE ATTEMPT [None]
